FAERS Safety Report 6639236-8 (Version None)
Quarter: 2010Q1

REPORT INFORMATION
  Report Type: 
  Country: None (occurrence: None)
  Receive Date: 20100315
  Receipt Date: 20100225
  Transmission Date: 20100710
  Serious: Yes (Death)
  Sender: FDA-Public Use
  Company Number: 2010VX000123

PATIENT
  Age: 68 Year
  Sex: Female

DRUGS (4)
  1. BUTALBITAL ACETAMINOPHEN AND CAFFEINE [Suspect]
     Indication: DRUG USE FOR UNKNOWN INDICATION
  2. BETA BLOCKER [Suspect]
     Indication: DRUG USE FOR UNKNOWN INDICATION
  3. CARDIAC GLYCOSIDE [Suspect]
     Indication: DRUG USE FOR UNKNOWN INDICATION
  4. PROMETHAZINE [Suspect]
     Indication: DRUG USE FOR UNKNOWN INDICATION

REACTIONS (14)
  - ACIDOSIS [None]
  - BRADYCARDIA [None]
  - COMPLETED SUICIDE [None]
  - CONFUSIONAL STATE [None]
  - DISEASE COMPLICATION [None]
  - DISSEMINATED INTRAVASCULAR COAGULATION [None]
  - GENERAL PHYSICAL HEALTH DETERIORATION [None]
  - HYPOTENSION [None]
  - INTESTINAL INFARCTION [None]
  - LETHARGY [None]
  - MULTIPLE DRUG OVERDOSE INTENTIONAL [None]
  - NO THERAPEUTIC RESPONSE [None]
  - POISONING [None]
  - SEPSIS [None]
